FAERS Safety Report 7509360-6 (Version None)
Quarter: 2011Q2

REPORT INFORMATION
  Report Type: 
  Country: None (occurrence: None)
  Receive Date: 20110527
  Receipt Date: 20110522
  Transmission Date: 20111010
  Serious: Yes (Death, Other)
  Sender: FDA-Public Use
  Company Number: PHHY2011MX44019

PATIENT
  Sex: Male

DRUGS (1)
  1. EXELON [Suspect]
     Indication: DEMENTIA ALZHEIMER'S TYPE
     Dosage: ONE PATCH (5 CM2) PER DAY
     Route: 062
     Dates: start: 20101227

REACTIONS (3)
  - HAEMORRHAGE [None]
  - FALL [None]
  - DIZZINESS [None]
